FAERS Safety Report 19775311 (Version 2)
Quarter: 2025Q2

REPORT INFORMATION
  Report Type: Spontaneous
  Country: IT (occurrence: IT)
  Receive Date: 20210902
  Receipt Date: 20250624
  Transmission Date: 20250717
  Serious: Yes (Life-Threatening, Other)
  Sender: AUROBINDO
  Company Number: IT-MLMSERVICE-20210819-3062171-1

PATIENT
  Age: 49 Year
  Sex: Female

DRUGS (3)
  1. FLUCONAZOLE [Suspect]
     Active Substance: FLUCONAZOLE
     Indication: Cryptococcosis
     Dosage: 200 MILLIGRAM, ONCE A DAY
     Route: 048
  2. FLUCONAZOLE [Suspect]
     Active Substance: FLUCONAZOLE
     Dosage: 400 MILLIGRAM, ONCE A DAY
     Route: 065
     Dates: start: 2018
  3. FLUCONAZOLE [Suspect]
     Active Substance: FLUCONAZOLE
     Dosage: 600 MILLIGRAM, ONCE A DAY
     Route: 065
     Dates: start: 2018

REACTIONS (2)
  - Pathogen resistance [Unknown]
  - Drug resistance [Unknown]

NARRATIVE: CASE EVENT DATE: 20190101
